FAERS Safety Report 10110572 (Version 1)
Quarter: 2014Q2

REPORT INFORMATION
  Report Type: Spontaneous
  Country: KR (occurrence: None)
  Receive Date: 20140423
  Receipt Date: 20140423
  Transmission Date: 20141212
  Serious: Yes (Hospitalization)
  Sender: FDA-Public Use
  Company Number: SYM-2014-19979

PATIENT
  Age: 59 Year
  Sex: Male

DRUGS (10)
  1. METRONIDAZOLE [Suspect]
     Indication: CHOLECYSTITIS ACUTE
     Route: 042
  2. MEROPENEM [Suspect]
     Indication: CHOLECYSTITIS ACUTE
     Route: 042
  3. QUININE [Suspect]
     Indication: PLASMODIUM VIVAX INFECTION
     Route: 042
  4. CHLOROQUINE [Suspect]
     Indication: PLASMODIUM VIVAX INFECTION
  5. DOPAMINE [Concomitant]
  6. HYDROCORTISONE [Concomitant]
  7. NOREPINEPHRINE [Concomitant]
  8. VASOPRESSIN AND ANALOGUES (NULL) [Concomitant]
  9. DOBUTAMINE [Concomitant]
  10. HEPARIN [Concomitant]

REACTIONS (2)
  - Hypoprothrombinaemia [None]
  - Catheter site haemorrhage [None]
